FAERS Safety Report 10526854 (Version 1)
Quarter: 2014Q4

REPORT INFORMATION
  Report Type: Report from Study
  Country: US (occurrence: US)
  Receive Date: 20141020
  Receipt Date: 20141020
  Transmission Date: 20150528
  Serious: Yes (Other)
  Sender: FDA-Public Use
  Company Number: US-ROCHE-1476237

PATIENT
  Sex: Male

DRUGS (3)
  1. GLIADEL [Concomitant]
     Active Substance: CARMUSTINE
  2. TEMODAR [Concomitant]
     Active Substance: TEMOZOLOMIDE
  3. AVASTIN [Suspect]
     Active Substance: BEVACIZUMAB
     Indication: GLIOBLASTOMA
     Route: 065
     Dates: start: 20140515

REACTIONS (1)
  - Glioblastoma [Unknown]
